FAERS Safety Report 19821476 (Version 1)
Quarter: 2021Q3

REPORT INFORMATION
  Report Type: Spontaneous
  Country: US (occurrence: US)
  Receive Date: 20210913
  Receipt Date: 20210913
  Transmission Date: 20211014
  Serious: Yes (Other)
  Sender: FDA-Public Use
  Company Number: US-MYLANLABS-2021M1060307

PATIENT
  Age: 42 Year
  Sex: Female

DRUGS (3)
  1. TIZANIDINE. [Suspect]
     Active Substance: TIZANIDINE
     Indication: MUSCLE SPASMS
     Dosage: 8 MILLIGRAM, QD, TOOK 8MG ONCE DAILY INSTEAD OF 4MG BID, AS PRESCRIBED
     Route: 065
  2. TIZANIDINE. [Suspect]
     Active Substance: TIZANIDINE
     Dosage: 4 MILLIGRAM, BID
     Route: 065
  3. MIDODRINE [Suspect]
     Active Substance: MIDODRINE
     Indication: SYNCOPE
     Dosage: UNK
     Route: 065

REACTIONS (7)
  - Intentional product misuse [Unknown]
  - Hypotension [Recovering/Resolving]
  - Somnolence [Unknown]
  - Hypertension [Recovering/Resolving]
  - Syncope [Recovered/Resolved]
  - Withdrawal hypertension [Recovering/Resolving]
  - Drug ineffective [Unknown]
